FAERS Safety Report 5167928-9 (Version None)
Quarter: 2006Q4

REPORT INFORMATION
  Report Type: 
  Country: None (occurrence: None)
  Receive Date: 20061208
  Receipt Date: 20051017
  Transmission Date: 20070319
  Serious: No
  Sender: FDA-Public Use
  Company Number: US-GLAXOSMITHKLINE-A0578434A

PATIENT
  Age: 75 Year
  Sex: Female

DRUGS (4)
  1. AVANDAMET [Suspect]
     Dosage: 1TAB PER DAY
     Route: 048
     Dates: start: 20040501
  2. GLUCOTROL [Concomitant]
  3. XANAX [Concomitant]
  4. VASOTEC [Concomitant]

REACTIONS (2)
  - HYPERTENSION [None]
  - NAUSEA [None]
